FAERS Safety Report 5751929-3 (Version None)
Quarter: 2008Q2

REPORT INFORMATION
  Report Type: 
  Country: None (occurrence: None)
  Receive Date: 20080527
  Receipt Date: 20080519
  Transmission Date: 20081010
  Serious: Yes (Other)
  Sender: FDA-Public Use
  Company Number: 16204

PATIENT
  Sex: Female

DRUGS (3)
  1. MULTIVITAMIN /00831701/. MFR: MAYNE [Suspect]
     Indication: ANOREXIA
     Dates: start: 20070327, end: 20070327
  2. MULTIVITAMIN /00831701/. MFR: MAYNE [Suspect]
     Indication: NAUSEA
     Dates: start: 20070327, end: 20070327
  3. DEXTROSE IN LACTATED RINGER'S [Concomitant]

REACTIONS (8)
  - ABDOMINAL PAIN [None]
  - ANAPHYLACTOID REACTION [None]
  - DRUG EXPOSURE DURING PREGNANCY [None]
  - DRUG INTOLERANCE [None]
  - HYPOAESTHESIA [None]
  - INFUSION RELATED REACTION [None]
  - MALAISE [None]
  - VAGINAL HAEMORRHAGE [None]
